FAERS Safety Report 10089269 (Version 1)
Quarter: 2014Q2

REPORT INFORMATION
  Report Type: Spontaneous
  Country: GB (occurrence: None)
  Receive Date: 20140417
  Receipt Date: 20140417
  Transmission Date: 20141212
  Serious: Yes (Death, Disabling)
  Sender: FDA-Public Use
  Company Number: FK201401339

PATIENT
  Age: 73 Year
  Sex: Male
  Weight: 108 kg

DRUGS (4)
  1. IRINOTECAN [Suspect]
     Indication: COLORECTAL CANCER METASTATIC
     Dosage: 1 IN 1 CYCLICAL
     Route: 042
     Dates: start: 20130626, end: 20130626
  2. FLUOROURACIL [Suspect]
     Indication: COLORECTAL CANCER METASTATIC
     Dosage: 1 IN 1 CYCLICAL
     Route: 042
     Dates: start: 20130626, end: 20130626
  3. FOLINIC ACID [Suspect]
     Indication: COLORECTAL CANCER METASTATIC
     Dosage: 1 IN 1 CYCLICAL
     Route: 042
     Dates: start: 20130626, end: 20130626
  4. AFLIBERCEPT [Suspect]
     Indication: COLORECTAL CANCER METASTATIC
     Dosage: 1 IN 1 CYCLICAL
     Route: 042
     Dates: start: 20130626, end: 20130626

REACTIONS (8)
  - Neoplasm progression [None]
  - Weight decreased [None]
  - Blood pressure increased [None]
  - Abdominal pain upper [None]
  - Fatigue [None]
  - Diarrhoea [None]
  - Activities of daily living impaired [None]
  - Colorectal cancer metastatic [None]
